FAERS Safety Report 19449533 (Version 1)
Quarter: 2021Q2

REPORT INFORMATION
  Report Type: Other
  Country: DE (occurrence: DE)
  Receive Date: 20210622
  Receipt Date: 20210622
  Transmission Date: 20210717
  Serious: Yes (Life-Threatening, Hospitalization, Other)
  Sender: FDA-Public Use
  Company Number: DE-DENTSPLY-2021SCDP000186

PATIENT
  Age: 52 Year
  Sex: Male

DRUGS (6)
  1. PROPOFOL. [Concomitant]
     Active Substance: PROPOFOL
     Indication: GENERAL ANAESTHESIA
     Dosage: UNK
     Route: 042
  2. LIDOCAINE. [Suspect]
     Active Substance: LIDOCAINE
     Indication: PERIPHERAL NERVE OPERATION
     Dosage: 10 MILLILITER TOTAL INJECTION (1% LIDOCAINE)
  3. LIDOCAINE. [Suspect]
     Active Substance: LIDOCAINE
     Indication: LOCAL ANAESTHESIA
  4. ROPIVACAINE. [Suspect]
     Active Substance: ROPIVACAINE HYDROCHLORIDE
     Indication: PERIPHERAL NERVE OPERATION
     Dosage: 10 MILLILITER TOTAL INJECTION (0.375 % ROPIVACAINE)
  5. ROPIVACAINE. [Suspect]
     Active Substance: ROPIVACAINE HYDROCHLORIDE
     Indication: LOCAL ANAESTHESIA
  6. SUFENTANIL [Concomitant]
     Active Substance: SUFENTANIL
     Indication: GENERAL ANAESTHESIA
     Dosage: UNK
     Route: 042

REACTIONS (7)
  - Hypotension [Recovered/Resolved]
  - Status epilepticus [Recovered/Resolved]
  - Nervous system disorder [None]
  - Pneumonia aspiration [Unknown]
  - Neurotoxicity [None]
  - Altered state of consciousness [Recovered/Resolved]
  - Dysphagia [Unknown]
